FAERS Safety Report 17456319 (Version 1)
Quarter: 2020Q1

REPORT INFORMATION
  Report Type: Spontaneous
  Country: CA (occurrence: CA)
  Receive Date: 20200225
  Receipt Date: 20200225
  Transmission Date: 20200409
  Serious: Yes (Death)
  Sender: FDA-Public Use
  Company Number: CA-TEVA-2020-CA-1189435

PATIENT
  Age: 79 Year
  Sex: Male
  Weight: 36 kg

DRUGS (14)
  1. OPSUMIT [Concomitant]
     Active Substance: MACITENTAN
  2. BISOPROLOL [Concomitant]
     Active Substance: BISOPROLOL
  3. RABEPRAZOLE [Concomitant]
     Active Substance: RABEPRAZOLE
  4. FUROSEMIDE. [Concomitant]
     Active Substance: FUROSEMIDE
  5. TELMISARTAN. [Concomitant]
     Active Substance: TELMISARTAN
  6. SILDENAFIL CITRATE. [Suspect]
     Active Substance: SILDENAFIL CITRATE
     Indication: PULMONARY ARTERIAL HYPERTENSION
     Dosage: 60 MILLIGRAM DAILY;
     Route: 048
  7. AMLODIPINE [Concomitant]
     Active Substance: AMLODIPINE BESYLATE
  8. COLCHICINE. [Concomitant]
     Active Substance: COLCHICINE
  9. TRACLEER [Concomitant]
     Active Substance: BOSENTAN
  10. INDOMETHACIN. [Concomitant]
     Active Substance: INDOMETHACIN
  11. UPTRAVI [Concomitant]
     Active Substance: SELEXIPAG
  12. SYNTHROID [Concomitant]
     Active Substance: LEVOTHYROXINE SODIUM
  13. CLOPIDOGREL [Concomitant]
     Active Substance: CLOPIDOGREL BISULFATE
  14. ROSUVASTATIN. [Concomitant]
     Active Substance: ROSUVASTATIN

REACTIONS (14)
  - Pain in jaw [Fatal]
  - Fatigue [Fatal]
  - Balance disorder [Fatal]
  - Musculoskeletal discomfort [Fatal]
  - Scratch [Fatal]
  - Wound [Fatal]
  - Death [Fatal]
  - Headache [Fatal]
  - Rash erythematous [Fatal]
  - Diarrhoea [Fatal]
  - Insomnia [Fatal]
  - Rash [Fatal]
  - Rash pruritic [Fatal]
  - Urticaria [Fatal]
